FAERS Safety Report 14695302 (Version 1)
Quarter: 2018Q1

REPORT INFORMATION
  Report Type: Spontaneous
  Country: US (occurrence: US)
  Receive Date: 20180327
  Receipt Date: 20180327
  Transmission Date: 20180509
  Serious: No
  Sender: FDA-Public Use
  Company Number: None

PATIENT
  Age: 52 Year
  Sex: Female

DRUGS (1)
  1. HUMIRA [Suspect]
     Active Substance: ADALIMUMAB
     Indication: RHEUMATOID ARTHRITIS
     Route: 058
     Dates: start: 20140101

REACTIONS (6)
  - Rash [None]
  - Paraesthesia [None]
  - Pruritus [None]
  - Blood pressure increased [None]
  - Therapy cessation [None]
  - Influenza [None]

NARRATIVE: CASE EVENT DATE: 20180301
